FAERS Safety Report 15257743 (Version 1)
Quarter: 2018Q3

REPORT INFORMATION
  Report Type: Spontaneous
  Country: GB (occurrence: GB)
  Receive Date: 20180808
  Receipt Date: 20180808
  Transmission Date: 20181010
  Serious: Yes (Other)
  Sender: FDA-Public Use
  Company Number: GB-GILEAD-2018-0353212

PATIENT
  Age: 42 Year
  Sex: Female

DRUGS (30)
  1. RITONAVIR. [Suspect]
     Active Substance: RITONAVIR
     Indication: HIV INFECTION
     Dosage: UNK
     Route: 065
     Dates: end: 20080922
  2. DEXTROMETHORPHAN POLISTIREX [Concomitant]
     Active Substance: DEXTROMETHORPHAN HYDROBROMIDE
  3. DRONABINOL. [Concomitant]
     Active Substance: DRONABINOL
  4. RITONAVIR. [Suspect]
     Active Substance: RITONAVIR
     Dosage: UNK
     Route: 065
     Dates: start: 20081106
  5. AZITHROMYCIN ANHYDROUS. [Concomitant]
     Active Substance: AZITHROMYCIN ANHYDROUS
  6. TRUVADA [Suspect]
     Active Substance: EMTRICITABINE\TENOFOVIR DISOPROXIL FUMARATE
     Indication: HIV INFECTION
     Dosage: UNK
     Route: 065
     Dates: end: 20080922
  7. RALTEGRAVIR. [Suspect]
     Active Substance: RALTEGRAVIR
     Indication: HIV INFECTION
     Dosage: UNK
     Route: 065
     Dates: start: 20080805, end: 20080922
  8. ETRAVIRINE [Suspect]
     Active Substance: ETRAVIRINE
     Indication: HIV INFECTION
     Dosage: UNK
     Route: 065
     Dates: end: 20080922
  9. ETRAVIRINE [Suspect]
     Active Substance: ETRAVIRINE
     Dosage: UNK
     Route: 065
     Dates: start: 20081106
  10. IBUPROFEN. [Concomitant]
     Active Substance: IBUPROFEN
  11. DARUNAVIR [Suspect]
     Active Substance: DARUNAVIR
     Indication: HIV INFECTION
     Dosage: UNK
     Route: 065
     Dates: end: 20080922
  12. ATROPINE SULFATE W/DIPHENOXYLATE HYDROCHLOR. [Concomitant]
     Active Substance: ATROPINE\DIPHENOXYLATE HYDROCHLORIDE
  13. DOCUSATE SODIUM. [Concomitant]
     Active Substance: DOCUSATE SODIUM
  14. PROCHLORPERAZINE MALEATE. [Concomitant]
     Active Substance: PROCHLORPERAZINE MALEATE
  15. ONDANSETRON HYDROCHLORIDE. [Concomitant]
     Active Substance: ONDANSETRON HYDROCHLORIDE
  16. PANTOPRAZOLE [Concomitant]
     Active Substance: PANTOPRAZOLE
  17. TRUVADA [Suspect]
     Active Substance: EMTRICITABINE\TENOFOVIR DISOPROXIL FUMARATE
     Dosage: UNK
     Route: 065
     Dates: start: 20081106
  18. RALTEGRAVIR. [Suspect]
     Active Substance: RALTEGRAVIR
     Dosage: UNK
     Route: 065
     Dates: start: 20081106
  19. DARUNAVIR [Suspect]
     Active Substance: DARUNAVIR
     Dosage: UNK
     Route: 065
     Dates: start: 20081106
  20. ZIDOVUDINE. [Suspect]
     Active Substance: ZIDOVUDINE
     Indication: HIV INFECTION
     Dosage: UNK
     Route: 065
     Dates: end: 20080922
  21. ZIDOVUDINE. [Suspect]
     Active Substance: ZIDOVUDINE
     Dosage: UNK
     Route: 065
     Dates: start: 20081106
  22. FLUCONAZOL [Concomitant]
     Active Substance: FLUCONAZOLE
  23. TRAZODONE HYDROCHLORIDE. [Concomitant]
     Active Substance: TRAZODONE HYDROCHLORIDE
  24. POTASSIUM CHLORIDE. [Concomitant]
     Active Substance: POTASSIUM CHLORIDE
  25. DEXAMETHASON                       /00016001/ [Concomitant]
     Active Substance: DEXAMETHASONE
  26. HYDROXYZINE HYDROCHLORIDE. [Concomitant]
     Active Substance: HYDROXYZINE HYDROCHLORIDE
  27. SULFAMETHOXAZOLE W/TRIMETHOPRIM [Concomitant]
     Active Substance: SULFAMETHOXAZOLE\TRIMETHOPRIM
  28. PENTAMIDINE ISETHIONATE. [Concomitant]
     Active Substance: PENTAMIDINE ISETHIONATE
  29. FAMOTIDINE. [Concomitant]
     Active Substance: FAMOTIDINE
  30. AMPHOTERICIN B. [Concomitant]
     Active Substance: AMPHOTERICIN B

REACTIONS (54)
  - Hepatotoxicity [Unknown]
  - Neutropenia [Unknown]
  - Activated partial thromboplastin time prolonged [Unknown]
  - Gastric ulcer [Unknown]
  - Gastrointestinal mucosal disorder [Unknown]
  - Hiatus hernia [Unknown]
  - Hypovolaemia [Unknown]
  - Acute kidney injury [Unknown]
  - Pneumonia [Unknown]
  - Blood bilirubin increased [Unknown]
  - Dyspnoea exertional [Unknown]
  - Hydronephrosis [Unknown]
  - Renal tubular necrosis [Unknown]
  - Rash maculo-papular [Unknown]
  - Hyperkalaemia [Unknown]
  - Hypersensitivity [Unknown]
  - Gastrooesophageal reflux disease [Unknown]
  - Hypernatraemia [Unknown]
  - Dehydration [Unknown]
  - Aspartate aminotransferase increased [Unknown]
  - Ocular icterus [Unknown]
  - Respiratory distress [Unknown]
  - Weight decreased [Unknown]
  - Diarrhoea [Unknown]
  - Nausea [Unknown]
  - Pneumocystis jirovecii pneumonia [Unknown]
  - Agitation [Unknown]
  - Thrombocytopenia [Unknown]
  - Failure to thrive [Unknown]
  - Renal failure [Unknown]
  - Tubulointerstitial nephritis [Unknown]
  - Rash [Unknown]
  - Asthenia [Unknown]
  - Cheilitis [Unknown]
  - Depression [Unknown]
  - Gastrointestinal disorder [Unknown]
  - Oesophageal candidiasis [Unknown]
  - Pancytopenia [Unknown]
  - Alveolitis allergic [Unknown]
  - Pyrexia [Unknown]
  - Confusional state [Unknown]
  - Alanine aminotransferase increased [Unknown]
  - Decreased appetite [Unknown]
  - Encephalopathy [Unknown]
  - Pancreatitis [Unknown]
  - Urticaria [Unknown]
  - Lichenoid keratosis [Unknown]
  - Hypotension [Unknown]
  - Autoimmune disorder [Unknown]
  - Autoimmune hepatitis [Recovered/Resolved]
  - Vomiting [Unknown]
  - Immune reconstitution inflammatory syndrome [Unknown]
  - Lipase increased [Unknown]
  - Hepatomegaly [Unknown]
